FAERS Safety Report 7810160-8 (Version None)
Quarter: 2011Q4

REPORT INFORMATION
  Report Type: 
  Country: None (occurrence: None)
  Receive Date: 20111012
  Receipt Date: 20111003
  Transmission Date: 20120403
  Serious: Yes (Life-Threatening)
  Sender: FDA-Public Use
  Company Number: FR-PFIZER INC-2011242147

PATIENT
  Age: 21 Year
  Sex: Male

DRUGS (1)
  1. FOSPHENYTOIN SODIUM [Suspect]
     Dosage: 750 MG, UNK

REACTIONS (5)
  - MEDICATION ERROR [None]
  - ADVERSE EVENT [None]
  - CIRCUMSTANCE OR INFORMATION CAPABLE OF LEADING TO MEDICATION ERROR [None]
  - DRUG PRESCRIBING ERROR [None]
  - INCORRECT DOSE ADMINISTERED [None]
